FAERS Safety Report 14310790 (Version 4)
Quarter: 2018Q1

REPORT INFORMATION
  Report Type: Report from Study
  Country: None (occurrence: TR)
  Receive Date: 20171220
  Receipt Date: 20180118
  Transmission Date: 20180509
  Serious: Yes (Hospitalization)
  Sender: FDA-Public Use
  Company Number: TR-ABBVIE-17K-161-2181014-00

PATIENT
  Age: 79 Year
  Sex: Female
  Weight: 70 kg

DRUGS (7)
  1. DUODOPA [Suspect]
     Active Substance: CARBIDOPA\LEVODOPA
     Indication: PARKINSON^S DISEASE
     Dosage: MORNING DOSE. 6.00 ML?CONTINUOUS DOSE. 3.20 ML?EXTRA DOSE: 1.00 ML
     Route: 050
     Dates: start: 20161109
  2. LUSTRAL [Concomitant]
     Active Substance: SERTRALINE HYDROCHLORIDE
     Indication: DEPRESSION
     Route: 048
     Dates: start: 2010
  3. DUODOPA [Suspect]
     Active Substance: CARBIDOPA\LEVODOPA
     Dosage: MORNING DOSE. 6.00 ML??CONTINUOUS DOSE. 3.50 ML??EXTRA DOSE: 1.00 ML
     Route: 050
     Dates: start: 201711, end: 2017
  4. GLIFOR [Concomitant]
     Active Substance: METFORMIN HYDROCHLORIDE
     Indication: DIABETES MELLITUS
     Route: 048
     Dates: start: 2010
  5. GALVUS [Concomitant]
     Active Substance: VILDAGLIPTIN
     Indication: DIABETES MELLITUS
     Route: 048
     Dates: start: 2014
  6. DUODOPA [Suspect]
     Active Substance: CARBIDOPA\LEVODOPA
     Dosage: MORNING DOSE. 6.00 ML?CONTINUOUS DOSE. 3.00 ML?EXTRA DOSE: 3.00 ML
     Route: 050
     Dates: start: 2017, end: 20171222
  7. PK-MERZ [Concomitant]
     Active Substance: AMANTADINE
     Indication: PARKINSON^S DISEASE
     Route: 048
     Dates: start: 2016

REACTIONS (7)
  - Pollakiuria [Recovered/Resolved]
  - Gait disturbance [Recovered/Resolved]
  - Stoma site erythema [Recovered/Resolved]
  - Blood urea increased [Recovered/Resolved]
  - Nausea [Recovered/Resolved]
  - Stoma site discharge [Recovered/Resolved]
  - Fungal infection [Recovered/Resolved]

NARRATIVE: CASE EVENT DATE: 201710
